FAERS Safety Report 6062702-3 (Version None)
Quarter: 2009Q1

REPORT INFORMATION
  Report Type: 
  Country: None (occurrence: None)
  Receive Date: 20090203
  Receipt Date: 20090126
  Transmission Date: 20090719
  Serious: Yes (Other)
  Sender: FDA-Public Use
  Company Number: US-AMGEN-QUU326930

PATIENT
  Sex: Female

DRUGS (4)
  1. ENBREL [Suspect]
     Indication: RHEUMATOID ARTHRITIS
     Route: 058
     Dates: start: 20041220
  2. METHOTREXATE [Concomitant]
     Route: 048
  3. HYDROCHLOROTHIAZIDE [Concomitant]
  4. TENORMIN [Concomitant]

REACTIONS (8)
  - BLOOD PRESSURE INCREASED [None]
  - BLOOD URINE PRESENT [None]
  - CAUDA EQUINA SYNDROME [None]
  - LUMBAR SPINAL STENOSIS [None]
  - NASOPHARYNGITIS [None]
  - NEPHROLITHIASIS [None]
  - POST PROCEDURAL COMPLICATION [None]
  - URINARY TRACT INFECTION [None]
